FAERS Safety Report 20170119 (Version 5)
Quarter: 2022Q1

REPORT INFORMATION
  Report Type: Report from Study
  Country: BR (occurrence: BR)
  Receive Date: 20211210
  Receipt Date: 20220303
  Transmission Date: 20220423
  Serious: Yes (Life-Threatening, Hospitalization, Other)
  Sender: FDA-Public Use
  Company Number: BR-NOVARTISPH-NVSC2020BR360582

PATIENT
  Age: 57 Year
  Sex: Female
  Weight: 56.5 kg

DRUGS (10)
  1. KISQALI [Suspect]
     Active Substance: RIBOCICLIB
     Indication: Breast cancer metastatic
     Dosage: 600 MG, QD (3 TABLET OF 200 MG,CYCLE FOR 21 DAYS WITH 7 DAYS BREAK)
     Route: 048
     Dates: start: 20201030
  2. KISQALI [Suspect]
     Active Substance: RIBOCICLIB
     Indication: Breast cancer
     Dosage: 3 DF
     Route: 065
     Dates: start: 20201030
  3. KISQALI [Suspect]
     Active Substance: RIBOCICLIB
     Dosage: 600 MG, QD (1 TABLET, FOR 21 DAYS)
     Route: 048
     Dates: start: 202012, end: 20210118
  4. KISQALI [Suspect]
     Active Substance: RIBOCICLIB
     Dosage: 2 DF, QD
     Route: 048
     Dates: start: 20210119
  5. KISQALI [Suspect]
     Active Substance: RIBOCICLIB
     Dosage: 600 MG (3 TABLETS OF 200 MG)
     Route: 048
  6. KISQALI [Suspect]
     Active Substance: RIBOCICLIB
     Dosage: UNK
     Route: 065
  7. LETROZOLE [Suspect]
     Active Substance: LETROZOLE
     Indication: Breast cancer
     Dosage: UNK
     Route: 065
  8. FULVESTRANT [Suspect]
     Active Substance: FULVESTRANT
     Indication: Breast cancer metastatic
     Dosage: 500 MG
     Route: 030
     Dates: start: 20201001
  9. DENOSUMAB [Concomitant]
     Active Substance: DENOSUMAB
     Indication: Bone disorder
     Dosage: UNK
     Route: 065
  10. EXEMESTANE [Concomitant]
     Active Substance: EXEMESTANE
     Indication: Product used for unknown indication
     Dosage: UNK
     Route: 065

REACTIONS (55)
  - Respiratory disorder [Recovering/Resolving]
  - Decreased immune responsiveness [Unknown]
  - Sepsis [Recovered/Resolved]
  - Infection [Recovered/Resolved]
  - Nosocomial infection [Recovered/Resolved]
  - Metastases to lung [Unknown]
  - Bacterial infection [Recovered/Resolved]
  - Chills [Unknown]
  - Device related infection [Unknown]
  - Renal impairment [Unknown]
  - Pleural effusion [Unknown]
  - Thrombosis [Recovered/Resolved]
  - Thrombosis [Unknown]
  - Malaise [Recovered/Resolved]
  - Retching [Unknown]
  - Gastric disorder [Recovered/Resolved]
  - Liver disorder [Recovered/Resolved]
  - Abdominal distension [Not Recovered/Not Resolved]
  - Eructation [Not Recovered/Not Resolved]
  - Decreased appetite [Recovered/Resolved]
  - Dry skin [Recovering/Resolving]
  - Constipation [Recovered/Resolved]
  - Constipation [Not Recovered/Not Resolved]
  - Nausea [Unknown]
  - Dyspepsia [Unknown]
  - Dizziness [Unknown]
  - Abdominal pain upper [Unknown]
  - Anxiety [Unknown]
  - Hypokinesia [Recovering/Resolving]
  - Oxygen saturation decreased [Recovered/Resolved]
  - Weight increased [Unknown]
  - Wound [Recovering/Resolving]
  - Tumour marker abnormal [Unknown]
  - Hepatic mass [Unknown]
  - Weight decreased [Unknown]
  - COVID-19 [Unknown]
  - Tumour marker increased [Unknown]
  - Liver disorder [Unknown]
  - Drug resistance [Unknown]
  - Dyspnoea [Not Recovered/Not Resolved]
  - Fatigue [Recovering/Resolving]
  - Asthenia [Recovering/Resolving]
  - Skin swelling [Unknown]
  - Skin disorder [Unknown]
  - Skin haemorrhage [Unknown]
  - Skin discolouration [Recovering/Resolving]
  - Sensitive skin [Unknown]
  - Anaemia [Unknown]
  - Dermatitis [Unknown]
  - Contusion [Unknown]
  - Skin exfoliation [Unknown]
  - Pruritus [Recovered/Resolved]
  - Diarrhoea [Recovering/Resolving]
  - Product prescribing error [Unknown]
  - Drug ineffective [Unknown]

NARRATIVE: CASE EVENT DATE: 20201001
